FAERS Safety Report 9850248 (Version 3)
Quarter: 2014Q1

REPORT INFORMATION
  Report Type: Spontaneous
  Country: US (occurrence: US)
  Receive Date: 20140128
  Receipt Date: 20140306
  Transmission Date: 20141002
  Serious: Yes (Hospitalization)
  Sender: FDA-Public Use
  Company Number: US-GLAXOSMITHKLINE-A1057503A

PATIENT
  Age: 59 Year
  Sex: Male

DRUGS (6)
  1. VENTOLIN HFA [Suspect]
     Indication: CHRONIC OBSTRUCTIVE PULMONARY DISEASE
     Dosage: 2PUFF UNKNOWN
     Route: 055
     Dates: start: 201307
  2. SYMBICORT [Concomitant]
  3. SPIRIVA [Concomitant]
  4. TUDORZA [Concomitant]
  5. NEBULIZER [Concomitant]
  6. DALIRESP [Concomitant]

REACTIONS (4)
  - Drug ineffective [Unknown]
  - Overdose [Unknown]
  - Dyspnoea [Unknown]
  - Product quality issue [Unknown]
